FAERS Safety Report 7497179-4 (Version None)
Quarter: 2011Q2

REPORT INFORMATION
  Report Type: 
  Country: None (occurrence: None)
  Receive Date: 20110523
  Receipt Date: 20110513
  Transmission Date: 20111010
  Serious: Yes (Hospitalization)
  Sender: FDA-Public Use
  Company Number: KR-ELI_LILLY_AND_COMPANY-KR201104004436

PATIENT
  Age: 83 Year
  Sex: Male

DRUGS (3)
  1. ORAL ANTIDIABETICS [Suspect]
     Dosage: UNK
  2. HUMALOG MIX 75/25 [Suspect]
     Dosage: 6 U, EACH EVENING
     Route: 058
     Dates: start: 20110101
  3. HUMALOG MIX 75/25 [Suspect]
     Indication: TYPE 2 DIABETES MELLITUS
     Dosage: 16 U, BID
     Route: 058
     Dates: start: 20110101

REACTIONS (3)
  - RENAL IMPAIRMENT [None]
  - CAPILLARY FRAGILITY [None]
  - ERYTHEMA [None]
